FAERS Safety Report 25630235 (Version 2)
Quarter: 2025Q3

REPORT INFORMATION
  Report Type: Spontaneous
  Country: CN (occurrence: CN)
  Receive Date: 20250801
  Receipt Date: 20250808
  Transmission Date: 20251021
  Serious: Yes (Hospitalization)
  Sender: ACCORD
  Company Number: CN-MLMSERVICE-20250714-PI577983-00082-1

PATIENT
  Age: 5 Year
  Sex: Male
  Weight: 17.5 kg

DRUGS (10)
  1. CARBOPLATIN [Suspect]
     Active Substance: CARBOPLATIN
     Indication: Retinoblastoma
     Dosage: 395 MG INTRAVENOUS INFUSION, DAY 1, WITH A 28-DAY CHEMOTHERAPY CYCLE
     Dates: start: 20230430
  2. ETOPOSIDE [Suspect]
     Active Substance: ETOPOSIDE
     Indication: Retinoblastoma
     Dosage: 105 MG INTRAVENOUS INFUSION DAYS 1-2, WITH A 28-DAY CHEMOTHERAPY CYCLE
     Dates: start: 20230430
  3. VINCRISTINE [Suspect]
     Active Substance: VINCRISTINE
     Indication: Retinoblastoma
     Dosage: 1.06 MG INTRAVENOUS INFUSION, DAY 1, WITH A 28-DAY CHEMOTHERAPY CYCLE
     Dates: start: 20230430
  4. FLUDROCORTISONE [Concomitant]
     Active Substance: FLUDROCORTISONE
     Indication: Adrenogenital syndrome
     Route: 048
  5. GRANISETRON [Concomitant]
     Active Substance: GRANISETRON
     Indication: Prophylaxis of nausea and vomiting
     Dates: start: 20230430
  6. HYDROCORTISONE [Concomitant]
     Active Substance: HYDROCORTISONE
     Indication: Prophylaxis
     Dates: start: 20230430
  7. FLUDROCORTISONE [Concomitant]
     Active Substance: FLUDROCORTISONE
     Indication: 21-hydroxylase deficiency
     Route: 048
  8. ETOPOSIDE [Suspect]
     Active Substance: ETOPOSIDE
     Indication: Disease recurrence
     Dosage: 105 MG INTRAVENOUS INFUSION DAYS 1-2, WITH A 28-DAY CHEMOTHERAPY CYCLE
     Dates: start: 20230430
  9. CARBOPLATIN [Suspect]
     Active Substance: CARBOPLATIN
     Indication: Disease recurrence
     Dosage: 395 MG INTRAVENOUS INFUSION, DAY 1, WITH A 28-DAY CHEMOTHERAPY CYCLE
     Dates: start: 20230430
  10. VINCRISTINE [Suspect]
     Active Substance: VINCRISTINE
     Indication: Disease recurrence
     Dosage: 1.06 MG INTRAVENOUS INFUSION, DAY 1, WITH A 28-DAY CHEMOTHERAPY CYCLE
     Dates: start: 20230430

REACTIONS (1)
  - Adrenocortical insufficiency acute [Recovered/Resolved]

NARRATIVE: CASE EVENT DATE: 20230502
